FAERS Safety Report 10752995 (Version 2)
Quarter: 2015Q2

REPORT INFORMATION
  Report Type: Spontaneous
  Country: US (occurrence: US)
  Receive Date: 20150130
  Receipt Date: 20150527
  Transmission Date: 20150821
  Serious: No
  Sender: FDA-Public Use
  Company Number: US-PFIZER INC-2015032759

PATIENT
  Age: 73 Year
  Sex: Female

DRUGS (7)
  1. LANTUS [Concomitant]
     Active Substance: INSULIN GLARGINE
     Dosage: 16 IU, AT NIGHT
     Dates: start: 1995
  2. BAYER LOW ASPIRIN [Concomitant]
     Dosage: 1 DF, 1X/DAY
     Dates: start: 1995
  3. OS CAL [Concomitant]
     Dosage: UNK, 1X/DAY
  4. XALATAN [Suspect]
     Active Substance: LATANOPROST
     Indication: GLAUCOMA
     Dosage: 1 DROP, 1X/DAY IN BOTH EYES
     Route: 047
     Dates: start: 2004
  5. COMBIGAN [Concomitant]
     Active Substance: BRIMONIDINE TARTRATE\TIMOLOL MALEATE
     Indication: GLAUCOMA
     Dosage: 1 GTT, 1X/DAY
     Dates: start: 2004
  6. NOVOLOG [Concomitant]
     Active Substance: INSULIN ASPART
     Dosage: 6 UNITS, 1X/DAY (6  UNITS)
     Dates: start: 1995
  7. PREDNISONE. [Concomitant]
     Active Substance: PREDNISONE
     Indication: SARCOIDOSIS
     Dosage: 5 MG, 1X/DAY
     Dates: start: 1995

REACTIONS (1)
  - No adverse event [Unknown]
